FAERS Safety Report 9941230 (Version 1)
Quarter: 2014Q1

REPORT INFORMATION
  Report Type: Report from Study
  Country: US (occurrence: US)
  Receive Date: 20140303
  Receipt Date: 20140303
  Transmission Date: 20141002
  Serious: No
  Sender: FDA-Public Use
  Company Number: US-ABBVIE-13P-163-1042821-00

PATIENT
  Age: 43 Year
  Sex: Female

DRUGS (4)
  1. HUMIRA [Suspect]
     Indication: RHEUMATOID ARTHRITIS
     Dates: start: 20120806
  2. VICTOZA [Concomitant]
     Indication: INSULIN RESISTANCE
     Dosage: DAILY
  3. MOTRIN [Concomitant]
     Indication: PAIN
  4. ADDERALL [Concomitant]
     Indication: DISTURBANCE IN ATTENTION
     Dosage: 10 MG DAILY

REACTIONS (2)
  - Dysphonia [Not Recovered/Not Resolved]
  - Throat irritation [Not Recovered/Not Resolved]
